FAERS Safety Report 7511064-0 (Version None)
Quarter: 2011Q2

REPORT INFORMATION
  Report Type: 
  Country: None (occurrence: None)
  Receive Date: 20110531
  Receipt Date: 20110516
  Transmission Date: 20111010
  Serious: Yes (Other)
  Sender: FDA-Public Use
  Company Number: CA-JNJFOC-20110206591

PATIENT
  Sex: Female
  Weight: 86 kg

DRUGS (13)
  1. FOLIC ACID [Concomitant]
  2. OMEPRAZOLE [Concomitant]
  3. HYDROXYQUINOLINE [Concomitant]
  4. BIOTENE [Concomitant]
     Dosage: AS REQUIRED OR WHEN NEEDED
  5. METFORMIN HCL [Concomitant]
     Dates: start: 20090101
  6. CYCLOBENZAPRINE [Concomitant]
  7. ATASOL [Concomitant]
     Dosage: ONCE IN 4 HOURS AS REQUIRED OR WHEN NEEDED
     Dates: start: 20100928
  8. CELEBREX [Concomitant]
  9. CITALON [Concomitant]
  10. REMICADE [Suspect]
     Indication: RHEUMATOID ARTHRITIS
     Dosage: DOSAGE FORM: VIAL
     Route: 042
     Dates: start: 20050701
  11. RAMIPRIL [Concomitant]
  12. MURO-128 [Concomitant]
     Route: 061
     Dates: start: 20100429
  13. CRESTOR [Concomitant]

REACTIONS (2)
  - INFECTION [None]
  - BUNION [None]
